FAERS Safety Report 21028000 (Version 1)
Quarter: 2022Q3

REPORT INFORMATION
  Report Type: Spontaneous
  Country: US (occurrence: US)
  Receive Date: 20220630
  Receipt Date: 20220630
  Transmission Date: 20221026
  Serious: Yes (Hospitalization)
  Sender: FDA-Public Use
  Company Number: US-NOVARTISPH-NVSC2022US143313

PATIENT
  Age: 64 Year
  Sex: Male

DRUGS (2)
  1. EVEROLIMUS [Suspect]
     Active Substance: EVEROLIMUS
     Indication: Product used for unknown indication
     Dosage: UNK
     Route: 065
  2. LENVIMA [Suspect]
     Active Substance: LENVATINIB
     Indication: Product used for unknown indication
     Dosage: 14 MG, QD
     Route: 048

REACTIONS (8)
  - Dyspnoea [Unknown]
  - Pulmonary oedema [Unknown]
  - Eating disorder [Unknown]
  - Sleep disorder [Unknown]
  - Tongue eruption [Unknown]
  - Cheilitis [Unknown]
  - Oral mucosal eruption [Unknown]
  - Blood glucose increased [Unknown]
